FAERS Safety Report 15388046 (Version 1)
Quarter: 2018Q3

REPORT INFORMATION
  Report Type: Spontaneous
  Country: GB (occurrence: GB)
  Receive Date: 20180915
  Receipt Date: 20180915
  Transmission Date: 20181010
  Serious: Yes (Life-Threatening, Other)
  Sender: FDA-Public Use
  Company Number: GB-AUROBINDO-AUR-APL-2018-045269

PATIENT
  Age: 82 Year
  Sex: Female
  Weight: 65 kg

DRUGS (1)
  1. ONDANSETRON [Suspect]
     Active Substance: ONDANSETRON
     Indication: PROCEDURAL NAUSEA
     Dosage: 8 MILLIGRAM
     Route: 042
     Dates: start: 20180629, end: 20180629

REACTIONS (3)
  - Dystonia [Recovered/Resolved]
  - Electrocardiogram QT prolonged [Recovered/Resolved]
  - Hypotension [Recovered/Resolved]

NARRATIVE: CASE EVENT DATE: 20180629
